FAERS Safety Report 11118333 (Version 1)
Quarter: 2015Q2

REPORT INFORMATION
  Report Type: Spontaneous
  Country: US (occurrence: None)
  Receive Date: 20150515
  Receipt Date: 20150515
  Transmission Date: 20150821
  Serious: Yes (Hospitalization)
  Sender: FDA-Public Use
  Company Number: None

PATIENT
  Age: 69 Year
  Sex: Male
  Weight: 85 kg

DRUGS (2)
  1. BYETTA [Suspect]
     Active Substance: EXENATIDE
     Indication: DIABETES MELLITUS
     Dosage: 5MCG, BID, SUBCUTANEOUS
     Route: 058
     Dates: start: 20150320
  2. BYETTA [Suspect]
     Active Substance: EXENATIDE
     Dosage: 10MCG, BID, SUBCUTANEOUS
     Route: 058
     Dates: start: 20150330

REACTIONS (2)
  - Pancreatitis [None]
  - Dehydration [None]

NARRATIVE: CASE EVENT DATE: 20150414
